FAERS Safety Report 6484126-7 (Version None)
Quarter: 2009Q4

REPORT INFORMATION
  Report Type: 
  Country: None (occurrence: None)
  Receive Date: 20091209
  Receipt Date: 20090520
  Transmission Date: 20100525
  Serious: No
  Sender: FDA-Public Use
  Company Number: US-AMGEN-KDL347977

PATIENT
  Sex: Male

DRUGS (1)
  1. ENBREL [Suspect]
     Indication: PSORIASIS
     Route: 058
     Dates: start: 20050825

REACTIONS (4)
  - INTRAOCULAR PRESSURE INCREASED [None]
  - PHOTOPHOBIA [None]
  - PSORIASIS [None]
  - VISUAL IMPAIRMENT [None]
